FAERS Safety Report 8320008 (Version 5)
Quarter: 2016Q4

REPORT INFORMATION
  Report Type: Report from Study
  Country: US (occurrence: US)
  Receive Date: 20120103
  Receipt Date: 20161110
  Transmission Date: 20170207
  Serious: Yes (Other)
  Sender: FDA-Public Use
  Company Number: US-ROCHE-GNE324255

PATIENT
  Age: 74 Year
  Sex: Female
  Weight: 61.29 kg

DRUGS (4)
  1. LIPITOR [Concomitant]
     Active Substance: ATORVASTATIN CALCIUM
     Dosage: FOR CARDIOVASCULAR HEALTH
     Route: 065
  2. RANIBIZUMAB [Suspect]
     Active Substance: RANIBIZUMAB
     Indication: NEOVASCULAR AGE-RELATED MACULAR DEGENERATION
     Dosage: 0.5 UNK, UNK
     Route: 050
     Dates: start: 20080601
  3. RANIBIZUMAB [Suspect]
     Active Substance: RANIBIZUMAB
     Route: 050
     Dates: start: 2012
  4. LIPITOR [Concomitant]
     Active Substance: ATORVASTATIN CALCIUM
     Route: 065

REACTIONS (19)
  - Photosensitivity reaction [Unknown]
  - Injection site pain [Unknown]
  - Pain [Unknown]
  - Visual impairment [Not Recovered/Not Resolved]
  - Eye injury [Unknown]
  - Eye swelling [Unknown]
  - Lacrimation increased [Unknown]
  - Visual acuity reduced [Not Recovered/Not Resolved]
  - Retinal injury [Recovered/Resolved]
  - Retinal degeneration [Unknown]
  - Dysphonia [Not Recovered/Not Resolved]
  - Conjunctivitis [Unknown]
  - Eye pain [Not Recovered/Not Resolved]
  - Ocular hyperaemia [Unknown]
  - Eye discharge [Unknown]
  - Blindness transient [Unknown]
  - Vision blurred [Not Recovered/Not Resolved]
  - Sinus disorder [Recovered/Resolved with Sequelae]
  - Intraocular pressure increased [Recovered/Resolved]

NARRATIVE: CASE EVENT DATE: 201108
